FAERS Safety Report 10102398 (Version 2)
Quarter: 2014Q2

REPORT INFORMATION
  Report Type: Report from Study
  Country: JP (occurrence: JP)
  Receive Date: 20140424
  Receipt Date: 20140424
  Transmission Date: 20141212
  Serious: Yes (Hospitalization)
  Sender: FDA-Public Use
  Company Number: JP-JNJFOC-20130715472

PATIENT
  Age: 29 Year
  Sex: Male
  Weight: 52 kg

DRUGS (17)
  1. REMICADE [Suspect]
     Indication: CROHN^S DISEASE
     Route: 042
     Dates: start: 20120622
  2. REMICADE [Suspect]
     Indication: CROHN^S DISEASE
     Dosage: 14TH DOSE
     Route: 042
     Dates: start: 20120427
  3. REMICADE [Suspect]
     Indication: CROHN^S DISEASE
     Route: 042
     Dates: start: 20120302
  4. REMICADE [Suspect]
     Indication: CROHN^S DISEASE
     Route: 042
     Dates: start: 20120106
  5. REMICADE [Suspect]
     Indication: CROHN^S DISEASE
     Route: 042
     Dates: start: 20111104
  6. REMICADE [Suspect]
     Indication: CROHN^S DISEASE
     Route: 042
     Dates: start: 20100507
  7. PREDONINE [Concomitant]
     Indication: CROHN^S DISEASE
     Route: 042
     Dates: start: 20120123, end: 20120124
  8. PENTASA [Concomitant]
     Indication: CROHN^S DISEASE
     Route: 048
     Dates: start: 2011
  9. BIOLACTIS [Concomitant]
     Route: 048
  10. CRAVIT [Concomitant]
     Route: 048
  11. GAMOFA [Concomitant]
     Route: 048
  12. MEROPEN(MEROPENEM) [Concomitant]
     Route: 042
  13. VANCOMYCIN [Concomitant]
     Route: 042
  14. FLAGYL [Concomitant]
     Route: 048
  15. EXCELASE [Concomitant]
     Route: 048
  16. DOMPERIDONE [Concomitant]
     Route: 048
  17. PAZUCROSS [Concomitant]
     Route: 065

REACTIONS (2)
  - Abdominal abscess [Recovered/Resolved]
  - Rectal lesion [Unknown]
